FAERS Safety Report 10055970 (Version 1)
Quarter: 2014Q2

REPORT INFORMATION
  Report Type: Spontaneous
  Country: US (occurrence: US)
  Receive Date: 20140403
  Receipt Date: 20140403
  Transmission Date: 20141212
  Serious: No
  Sender: FDA-Public Use
  Company Number: US-PFIZER INC-2014087283

PATIENT
  Age: 58 Year
  Sex: Male

DRUGS (2)
  1. XELJANZ [Suspect]
     Dosage: 5 MG, 2X/DAY
  2. XELJANZ [Suspect]
     Dosage: 2.5 MG, 2X/DAY
     Dates: start: 201401

REACTIONS (2)
  - Malaise [Unknown]
  - Diarrhoea [Unknown]
